FAERS Safety Report 23320511 (Version 1)
Quarter: 2023Q4

REPORT INFORMATION
  Report Type: Spontaneous
  Country: US (occurrence: US)
  Receive Date: 20231220
  Receipt Date: 20231220
  Transmission Date: 20240110
  Serious: Yes (Life-Threatening, Other)
  Sender: FDA-Public Use
  Company Number: US-PFIZER INC-202300442611

PATIENT
  Age: 36 Year
  Sex: Female
  Weight: 62 kg

DRUGS (6)
  1. DAPTOMYCIN [Suspect]
     Active Substance: DAPTOMYCIN
     Indication: Staphylococcal bacteraemia
     Dosage: UNK
  2. DAPTOMYCIN [Suspect]
     Active Substance: DAPTOMYCIN
     Indication: Device related infection
     Dosage: UNK
  3. DAPTOMYCIN [Suspect]
     Active Substance: DAPTOMYCIN
     Dosage: UNK
  4. DALBAVANCIN [Concomitant]
     Active Substance: DALBAVANCIN
     Indication: Staphylococcal bacteraemia
     Dosage: 1500 MG BIWEEKLY
     Route: 042
  5. DALBAVANCIN [Concomitant]
     Active Substance: DALBAVANCIN
     Indication: Device related infection
     Dosage: 1500 MG BIWEEKLY (RESUMPTION)
  6. DALBAVANCIN [Concomitant]
     Active Substance: DALBAVANCIN
     Dosage: 1500 MG BIWEEKLY (RESUMPTION)

REACTIONS (1)
  - Pathogen resistance [Unknown]
